FAERS Safety Report 6169563-2 (Version None)
Quarter: 2009Q2

REPORT INFORMATION
  Report Type: 
  Country: None (occurrence: None)
  Receive Date: 20090428
  Receipt Date: 20090420
  Transmission Date: 20091009
  Serious: Yes (Hospitalization)
  Sender: FDA-Public Use
  Company Number: US-KINGPHARMUSA00001-K200900463

PATIENT
  Age: 57 Year
  Sex: Female

DRUGS (9)
  1. ALTACE [Suspect]
     Indication: CARDIAC FAILURE
     Dosage: UNK
     Route: 048
     Dates: start: 20050101
  2. LEVOXYL [Suspect]
     Dosage: UNK
     Route: 048
     Dates: start: 20050101
  3. LASILIX                            /00032601/ [Suspect]
     Dosage: UNK
     Route: 048
     Dates: start: 20050101
  4. DI-ANTALVIC                        /00016701/ [Suspect]
     Dosage: UNK
     Route: 048
     Dates: start: 20050101
  5. MEDIATOR [Suspect]
     Indication: DIABETES MELLITUS
     Dosage: 450 MG, QD
     Route: 048
     Dates: start: 20030101, end: 20060101
  6. FORADIL                            /00958001/ [Suspect]
     Indication: DEPRESSION
     Dosage: UNK
     Dates: start: 20050101
  7. PAROXETIN                          /00830801/ [Suspect]
     Indication: DEPRESSION
     Dosage: UNK
     Dates: start: 20050101, end: 20070101
  8. XANAX [Suspect]
     Dosage: UNK
     Route: 048
     Dates: start: 20050101
  9. DIFFU K [Suspect]
     Dosage: UNK
     Route: 048
     Dates: start: 20050101

REACTIONS (5)
  - EJECTION FRACTION DECREASED [None]
  - MITRAL VALVE INCOMPETENCE [None]
  - PULMONARY ARTERIAL HYPERTENSION [None]
  - TRICUSPID VALVE INCOMPETENCE [None]
  - VENTRICULAR HYPOKINESIA [None]
